FAERS Safety Report 16386690 (Version 1)
Quarter: 2019Q2

REPORT INFORMATION
  Report Type: Report from Study
  Country: None (occurrence: CA)
  Receive Date: 20190604
  Receipt Date: 20190604
  Transmission Date: 20190711
  Serious: Yes (Other)
  Sender: FDA-Public Use
  Company Number: CA-ABBVIE-19K-028-2667269-00

PATIENT
  Sex: Male

DRUGS (2)
  1. HUMIRA [Suspect]
     Active Substance: ADALIMUMAB
     Route: 058
     Dates: start: 2019, end: 20190122
  2. HUMIRA [Suspect]
     Active Substance: ADALIMUMAB
     Indication: CROHN^S DISEASE
     Route: 058
     Dates: start: 20160725, end: 201902

REACTIONS (5)
  - Anorectal disorder [Unknown]
  - Intestinal stenosis [Unknown]
  - Therapeutic product effect decreased [Not Recovered/Not Resolved]
  - Crohn^s disease [Unknown]
  - Gastrointestinal pain [Not Recovered/Not Resolved]
